FAERS Safety Report 8790207 (Version 1)
Quarter: 2012Q4

REPORT INFORMATION
  Report Type: 
  Country: US (occurrence: US)
  Receive Date: 20120917
  Receipt Date: 20120917
  Transmission Date: 20130627
  Serious: Yes (Other)
  Sender: FDA-Public Use
  Company Number: US-NAPPMUNDI-USA-2012-0092801

PATIENT
  Age: 85 Year
  Sex: Female

DRUGS (3)
  1. PERI-COLACE [Suspect]
     Indication: CONSTIPATION
     Dosage: 50 mg, hs
     Route: 048
  2. COUMADIN [Concomitant]
     Indication: ATRIAL FIBRILLATION
     Dosage: 2 mg, daily
     Route: 048
  3. ATENOLOL [Concomitant]
     Indication: CARDIAC DISORDER
     Dosage: 25 mg, bid
     Route: 048

REACTIONS (2)
  - Choking [Recovered/Resolved]
  - Dyspnoea [Unknown]
